FAERS Safety Report 8361399-7 (Version None)
Quarter: 2012Q2

REPORT INFORMATION
  Report Type: 
  Country: None (occurrence: None)
  Receive Date: 20120515
  Receipt Date: 20110815
  Transmission Date: 20120825
  Serious: No
  Sender: FDA-Public Use
  Company Number: US-ALEXION-A201101240

PATIENT
  Sex: Male
  Weight: 500 kg

DRUGS (6)
  1. COUMADIN [Concomitant]
  2. SOLIRIS [Suspect]
     Indication: PAROXYSMAL NOCTURNAL HAEMOGLOBINURIA
     Dosage: 900 MG Q2W
     Route: 042
     Dates: start: 20100505
  3. CELEX [Concomitant]
  4. IRON [Concomitant]
  5. WELLBUTRIN [Concomitant]
  6. PRILOSEC [Concomitant]

REACTIONS (1)
  - MIGRAINE [None]
